FAERS Safety Report 12235451 (Version 3)
Quarter: 2016Q2

REPORT INFORMATION
  Report Type: Spontaneous
  Country: US (occurrence: US)
  Receive Date: 20160404
  Receipt Date: 20160630
  Transmission Date: 20160815
  Serious: Yes (Hospitalization, Other)
  Sender: FDA-Public Use
  Company Number: US-BAYER-2016-059817

PATIENT
  Age: 66 Year
  Sex: Female
  Weight: 95.24 kg

DRUGS (3)
  1. COUMADIN [Interacting]
     Active Substance: WARFARIN SODIUM
     Indication: CORONARY ARTERIAL STENT INSERTION
  2. CLOPIDOGREL [Interacting]
     Active Substance: CLOPIDOGREL BISULFATE
     Indication: CORONARY ARTERIAL STENT INSERTION
  3. ACETYLSALICYLIC ACID({=100 MG) [Suspect]
     Active Substance: ASPIRIN
     Indication: CORONARY ARTERIAL STENT INSERTION
     Dosage: 81 MG QD

REACTIONS (5)
  - Peroneal nerve palsy [None]
  - Pain in extremity [Recovering/Resolving]
  - Sciatic nerve palsy [Recovering/Resolving]
  - Labelled drug-drug interaction medication error [None]
  - Post procedural haematoma [None]
